FAERS Safety Report 9288876 (Version 1)
Quarter: 2013Q2

REPORT INFORMATION
  Report Type: Spontaneous
  Country: US (occurrence: US)
  Receive Date: 20130514
  Receipt Date: 20130514
  Transmission Date: 20140414
  Serious: Yes (Other)
  Sender: FDA-Public Use
  Company Number: US-GLAXOSMITHKLINE-A0814504A

PATIENT
  Sex: Male

DRUGS (1)
  1. ROSIGLITAZONE MALEATE [Suspect]
     Indication: DIABETES MELLITUS
     Route: 048

REACTIONS (4)
  - Myocardial infarction [Not Recovered/Not Resolved]
  - Cerebrovascular accident [Unknown]
  - Cardiac operation [Unknown]
  - Transient ischaemic attack [Unknown]
